FAERS Safety Report 23286826 (Version 1)
Quarter: 2023Q4

REPORT INFORMATION
  Report Type: Spontaneous
  Country: US (occurrence: None)
  Receive Date: 20231209
  Receipt Date: 20231209
  Transmission Date: 20240110
  Serious: Yes (Life-Threatening, Hospitalization, Disabling, Other)
  Sender: FDA-Public Use
  Company Number: None

PATIENT
  Age: 40 Year
  Sex: Male
  Weight: 100.35 kg

DRUGS (13)
  1. LISDEXAMFETAMINE [Suspect]
     Active Substance: LISDEXAMFETAMINE
     Indication: Attention deficit hyperactivity disorder
     Dosage: OTHER QUANTITY : 1 CAPSULE(S);?FREQUENCY : DAILY;?
     Route: 048
     Dates: start: 20231117, end: 20231203
  2. CLARITIN [Concomitant]
     Active Substance: LORATADINE
  3. PROTONIX [Concomitant]
     Active Substance: PANTOPRAZOLE SODIUM
  4. BUSPIRONE [Concomitant]
     Active Substance: BUSPIRONE HYDROCHLORIDE
  5. SINGULAIR [Concomitant]
     Active Substance: MONTELUKAST SODIUM
  6. PLAVIX [Concomitant]
     Active Substance: CLOPIDOGREL BISULFATE
  7. VITAMIN D3 [Concomitant]
     Active Substance: CHOLECALCIFEROL
  8. SIMVASTATIN [Concomitant]
     Active Substance: SIMVASTATIN
  9. ASPIRIN [Concomitant]
     Active Substance: ASPIRIN
  10. AMBIEN [Concomitant]
     Active Substance: ZOLPIDEM TARTRATE
  11. FIORICET [Concomitant]
     Active Substance: ACETAMINOPHEN\BUTALBITAL\CAFFEINE
  12. DEVICE [Concomitant]
     Active Substance: DEVICE
  13. Vitamin D Complex [Concomitant]

REACTIONS (2)
  - Ischaemic stroke [None]
  - Hypertension [None]

NARRATIVE: CASE EVENT DATE: 20231203
